FAERS Safety Report 21119571 (Version 2)
Quarter: 2022Q3

REPORT INFORMATION
  Report Type: Spontaneous
  Country: US (occurrence: EC)
  Receive Date: 20220722
  Receipt Date: 20220810
  Transmission Date: 20221027
  Serious: No
  Sender: FDA-Public Use
  Company Number: US-Calliditas-2022CAL00222

PATIENT
  Age: 56 Year
  Sex: Male

DRUGS (7)
  1. TARPEYO [Suspect]
     Active Substance: BUDESONIDE
     Indication: IgA nephropathy
     Dosage: 16 MG (4 MG CAPSULES) ONCE DAILY
     Route: 048
     Dates: start: 20220614
  2. COZAAR [Concomitant]
     Active Substance: LOSARTAN POTASSIUM
     Dosage: 25MG QD
  3. PREDNISONE [Concomitant]
     Active Substance: PREDNISONE
     Dosage: 20MD QD
  4. VASCEPA [Concomitant]
     Active Substance: ICOSAPENT ETHYL
     Dosage: 4 CAPS A DAY (2 IN THE MORNING 2 AT NIGHT)
  5. REPATHA [Concomitant]
     Active Substance: EVOLOCUMAB
  6. ASPIRIN [Concomitant]
     Active Substance: ASPIRIN
     Dosage: 81MG DAILY
  7. NORCO [Concomitant]
     Active Substance: ACETAMINOPHEN\HYDROCODONE BITARTRATE
     Dosage: 5MG PRN 1 PILL FOR PAIN

REACTIONS (2)
  - Joint swelling [Not Recovered/Not Resolved]
  - Dizziness [Not Recovered/Not Resolved]

NARRATIVE: CASE EVENT DATE: 20220625
